FAERS Safety Report 18059139 (Version 1)
Quarter: 2020Q3

REPORT INFORMATION
  Report Type: Other
  Country: US (occurrence: US)
  Receive Date: 20200723
  Receipt Date: 20200723
  Transmission Date: 20201103
  Serious: Yes (Hospitalization)
  Sender: FDA-Public Use
  Company Number: US-ROCHE-2642237

PATIENT
  Sex: Female

DRUGS (1)
  1. OCREVUS [Suspect]
     Active Substance: OCRELIZUMAB
     Indication: RELAPSING MULTIPLE SCLEROSIS
     Dosage: ON 30/OCT/2017, 09/APR/2018, 09/OCT/2018, 09?SEP?2019, 21/OCT/2019 AND 20/APR/2020, HE RECEIVED SUBS
     Route: 065

REACTIONS (1)
  - COVID-19 [Not Recovered/Not Resolved]
